FAERS Safety Report 4957071-3 (Version None)
Quarter: 2006Q1

REPORT INFORMATION
  Report Type: 
  Country: None (occurrence: None)
  Receive Date: 20060323
  Receipt Date: 20060310
  Transmission Date: 20060701
  Serious: Yes (Other)
  Sender: FDA-Public Use
  Company Number: 2006034583

PATIENT
  Age: 73 Year
  Sex: Male
  Weight: 90.7194 kg

DRUGS (5)
  1. DETROL LA [Suspect]
     Indication: MUSCLE SPASMS
     Dosage: 4 MG (4 MG, 1 IN 1 D) ORAL
     Route: 048
     Dates: start: 20060201
  2. COUMADIN [Concomitant]
  3. ACTOS [Concomitant]
  4. LIPITOR [Concomitant]
  5. DRUG, UNSPECIFIED [Concomitant]

REACTIONS (5)
  - DRY MOUTH [None]
  - DRY THROAT [None]
  - DYSPHONIA [None]
  - NEPHROLITHIASIS [None]
  - RENAL NEOPLASM [None]
